FAERS Safety Report 8351240 (Version 15)
Quarter: 2015Q2

REPORT INFORMATION
  Report Type: Report from Study
  Country: CA (occurrence: CA)
  Receive Date: 20120124
  Receipt Date: 20150409
  Transmission Date: 20150821
  Serious: Yes (Other)
  Sender: FDA-Public Use
  Company Number: PHHY2009CA24453

PATIENT
  Age: 72 Year
  Sex: Female

DRUGS (3)
  1. SANDOSTATIN LAR DEPOT [Suspect]
     Active Substance: OCTREOTIDE ACETATE
     Indication: NEUROENDOCRINE TUMOUR
     Dosage: 30 MG, QMO
     Route: 030
     Dates: start: 20080912
  2. QUETIAPINE [Concomitant]
     Active Substance: QUETIAPINE
     Indication: PRODUCT USED FOR UNKNOWN INDICATION
     Dosage: 25 MG, AT BEDTIME (THE OTHER DOSE IN THE MORNING)
     Route: 065
  3. SANDOSTATIN LAR DEPOT [Suspect]
     Active Substance: OCTREOTIDE ACETATE
     Dosage: 30 MG, EVERY 4 WEEKS
     Route: 030

REACTIONS (21)
  - Nasopharyngitis [Unknown]
  - Heart rate irregular [Unknown]
  - Dyspnoea [Unknown]
  - Pyrexia [Unknown]
  - Acne [Unknown]
  - Heart rate decreased [Unknown]
  - Influenza [Unknown]
  - Weight decreased [Unknown]
  - Insomnia [Unknown]
  - Blood pressure systolic decreased [Unknown]
  - Flushing [Unknown]
  - Fatigue [Unknown]
  - Asthenia [Unknown]
  - Pain [Unknown]
  - Back pain [Unknown]
  - Renal pain [Unknown]
  - Diarrhoea [Unknown]
  - Blood pressure increased [Not Recovered/Not Resolved]
  - Blood pressure decreased [Unknown]
  - Burning sensation [Unknown]
  - Palpitations [Unknown]

NARRATIVE: CASE EVENT DATE: 20140324
